FAERS Safety Report 5737627-0 (Version None)
Quarter: 2008Q2

REPORT INFORMATION
  Report Type: 
  Country: None (occurrence: None)
  Receive Date: 20080507
  Receipt Date: 20070402
  Transmission Date: 20081010
  Serious: Yes (Other)
  Sender: FDA-Public Use
  Company Number: 490955

PATIENT
  Age: 45 Year
  Sex: Female

DRUGS (3)
  1. NAPROSYN [Suspect]
     Indication: DRUG USE FOR UNKNOWN INDICATION
  2. REBIF [Suspect]
     Indication: MULTIPLE SCLEROSIS
     Dosage: 44 MCG 3 PER WEEK SUBCUTANEOUS
     Route: 058
     Dates: start: 20040416
  3. ULTRAM [Concomitant]

REACTIONS (1)
  - RENAL FAILURE [None]
